FAERS Safety Report 7564650-6 (Version None)
Quarter: 2011Q2

REPORT INFORMATION
  Report Type: 
  Country: None (occurrence: None)
  Receive Date: 20110622
  Receipt Date: 20101008
  Transmission Date: 20111010
  Serious: Yes (Other)
  Sender: FDA-Public Use
  Company Number: US-MYLANLABS-2010S1014065

PATIENT
  Age: 51 Year
  Sex: Male
  Weight: 91.17 kg

DRUGS (6)
  1. DOCUSATE [Concomitant]
     Dosage: BID PRN
     Dates: start: 20100601
  2. DEPAKOTE ER [Concomitant]
     Dates: start: 20080301
  3. CLOZAPINE [Suspect]
     Indication: SCHIZOPHRENIA, PARANOID TYPE
     Dates: start: 20011201, end: 20100910
  4. COGENTIN [Concomitant]
     Dates: start: 20090501
  5. PROTEASE [Concomitant]
  6. PROBIOTIC FEMINA [Concomitant]

REACTIONS (2)
  - LEUKOPENIA [None]
  - GRANULOCYTOPENIA [None]
